FAERS Safety Report 21392394 (Version 1)
Quarter: 2022Q3

REPORT INFORMATION
  Report Type: Spontaneous
  Country: CN (occurrence: CN)
  Receive Date: 20220929
  Receipt Date: 20220929
  Transmission Date: 20221026
  Serious: Yes (Other)
  Sender: FDA-Public Use
  Company Number: CN-PFIZER INC-202201191852

PATIENT
  Age: 41 Year
  Sex: Male
  Weight: 65 kg

DRUGS (8)
  1. METHOTREXATE SODIUM [Suspect]
     Active Substance: METHOTREXATE SODIUM
     Indication: Burkitt^s lymphoma
     Dosage: 1.5 G, 1X/DAY
     Route: 041
     Dates: start: 20220812, end: 20220812
  2. METHOTREXATE SODIUM [Suspect]
     Active Substance: METHOTREXATE SODIUM
     Indication: HIV infection
  3. CYTARABINE [Suspect]
     Active Substance: CYTARABINE
     Indication: Burkitt^s lymphoma
     Dosage: 4800 MG, 2X/DAY
     Route: 041
     Dates: start: 20220813, end: 20220813
  4. CYTARABINE [Suspect]
     Active Substance: CYTARABINE
     Indication: HIV infection
  5. CYTARABINE [Suspect]
     Active Substance: CYTARABINE
     Indication: Burkitt^s lymphoma
     Dosage: 0.05 G, 1X/DAY
     Dates: start: 20220813, end: 20220819
  6. CYTARABINE [Suspect]
     Active Substance: CYTARABINE
     Indication: HIV infection
  7. METHOTREXATE [Suspect]
     Active Substance: METHOTREXATE
     Indication: Burkitt^s lymphoma
     Dosage: 0.015 G, 1X/DAY
     Dates: start: 20220813, end: 20220819
  8. METHOTREXATE [Suspect]
     Active Substance: METHOTREXATE
     Indication: HIV infection

REACTIONS (2)
  - Platelet count decreased [Recovering/Resolving]
  - White blood cell count decreased [Recovering/Resolving]

NARRATIVE: CASE EVENT DATE: 20220817
